FAERS Safety Report 11193768 (Version 1)
Quarter: 2015Q2

REPORT INFORMATION
  Report Type: Spontaneous
  Country: US (occurrence: US)
  Receive Date: 20150616
  Receipt Date: 20150616
  Transmission Date: 20150821
  Serious: Yes (Hospitalization, Other)
  Sender: FDA-Public Use
  Company Number: US-INCYTE CORPORATION-2015IN001507

PATIENT
  Age: 73 Year
  Sex: Female
  Weight: 65.31 kg

DRUGS (5)
  1. JAKAFI [Suspect]
     Active Substance: RUXOLITINIB
     Indication: MYELOFIBROSIS
     Dosage: 10 MG, BID
     Route: 048
     Dates: start: 20150401
  2. ASPIRIN. [Concomitant]
     Active Substance: ASPIRIN
  3. MULTIVITAMIN                       /07504101/ [Concomitant]
     Active Substance: VITAMINS
  4. JAKAFI [Suspect]
     Active Substance: RUXOLITINIB
     Dosage: 10 MG, BID
  5. VITAMIN C [Concomitant]
     Active Substance: ASCORBIC ACID

REACTIONS (13)
  - Thrombophlebitis [Recovered/Resolved]
  - Anal haemorrhage [Unknown]
  - White blood cell count increased [Unknown]
  - Platelet count decreased [Unknown]
  - Hypoaesthesia [Unknown]
  - Haemoglobin decreased [Unknown]
  - Dyspnoea [Unknown]
  - Abdominal discomfort [Unknown]
  - Arthralgia [Unknown]
  - Dizziness [Unknown]
  - Fatigue [Unknown]
  - Headache [Unknown]
  - Constipation [Unknown]

NARRATIVE: CASE EVENT DATE: 2015
